FAERS Safety Report 22140936 (Version 1)
Quarter: 2023Q1

REPORT INFORMATION
  Report Type: Spontaneous
  Country: US (occurrence: None)
  Receive Date: 20230324
  Receipt Date: 20230324
  Transmission Date: 20230418
  Serious: Yes (Hospitalization)
  Sender: FDA-Public Use
  Company Number: None

PATIENT
  Sex: Male
  Weight: 68.49 kg

DRUGS (9)
  1. ABIRATERONE ACETATE [Suspect]
     Active Substance: ABIRATERONE ACETATE
     Indication: Prostate cancer
     Dosage: FREQUENCY : DAILY;?
     Route: 048
  2. ACYCLOVIR [Concomitant]
  3. ALLOPURINOL [Concomitant]
     Active Substance: ALLOPURINOL
  4. ELIQUIS [Concomitant]
  5. FLUCONAZOLE [Concomitant]
  6. LEVETIRACETAM [Concomitant]
  7. LEVOFLOXACIN [Concomitant]
  8. PANTOPRAZOLE [Concomitant]
  9. PREDNISONE [Concomitant]

REACTIONS (1)
  - Hospitalisation [None]
